FAERS Safety Report 26020941 (Version 2)
Quarter: 2025Q4

REPORT INFORMATION
  Report Type: Other
  Country: GB (occurrence: GB)
  Receive Date: 20251110
  Receipt Date: 20251128
  Transmission Date: 20260118
  Serious: No
  Sender: GLENMARK
  Company Number: None

PATIENT

DRUGS (1)
  1. DAPAGLIFLOZIN [Suspect]
     Active Substance: DAPAGLIFLOZIN
     Indication: Product used for unknown indication
     Dosage: UNK
     Route: 065

REACTIONS (1)
  - Nausea [Recovering/Resolving]
